FAERS Safety Report 8243348-5 (Version None)
Quarter: 2012Q1

REPORT INFORMATION
  Report Type: 
  Country: None (occurrence: None)
  Receive Date: 20120329
  Receipt Date: 20120322
  Transmission Date: 20120608
  Serious: Yes (Other)
  Sender: FDA-Public Use
  Company Number: US-BAYER-2012-028932

PATIENT
  Sex: Male

DRUGS (1)
  1. ALKA-SELTZER PLUS NIGHT COLD [Suspect]
     Dosage: 2 DF, ONCE
     Route: 048

REACTIONS (1)
  - HYPERSOMNIA [None]
